FAERS Safety Report 10072732 (Version 3)
Quarter: 2014Q2

REPORT INFORMATION
  Report Type: Spontaneous
  Country: US (occurrence: US)
  Receive Date: 20140411
  Receipt Date: 20140526
  Transmission Date: 20141212
  Serious: Yes (Other)
  Sender: FDA-Public Use
  Company Number: US-PFIZER INC-2014102360

PATIENT
  Sex: Female

DRUGS (5)
  1. GABAPENTIN [Suspect]
     Indication: NEUROPATHY PERIPHERAL
     Dosage: UNK
  2. GABAPENTIN [Suspect]
     Indication: PARAESTHESIA
     Dosage: UNK DAILY (9 PILLS A DAY)
  3. GABAPENTIN [Suspect]
     Indication: PARAESTHESIA
  4. GABAPENTIN [Suspect]
     Indication: HYPOAESTHESIA
  5. GABAPENTIN [Suspect]
     Indication: PARAESTHESIA

REACTIONS (2)
  - Diabetes mellitus [Unknown]
  - Drug ineffective [Unknown]
